FAERS Safety Report 6367859-2 (Version None)
Quarter: 2009Q3

REPORT INFORMATION
  Report Type: 
  Country: None (occurrence: None)
  Receive Date: 20090921
  Receipt Date: 20090414
  Transmission Date: 20100115
  Serious: Yes (Hospitalization)
  Sender: FDA-Public Use
  Company Number: BE-MERCK-0904BEL00009

PATIENT
  Age: 75 Year
  Sex: Male
  Weight: 91 kg

DRUGS (11)
  1. SINGULAIR [Suspect]
     Indication: ASTHMA
     Route: 048
     Dates: start: 20081231, end: 20090210
  2. SINGULAIR [Suspect]
     Indication: BRONCHITIS
     Route: 048
     Dates: start: 20081231, end: 20090210
  3. LISINOPRIL [Concomitant]
     Route: 048
  4. CALCIUM CARBONATE AND CHOLECALCIFEROL [Concomitant]
     Route: 048
  5. AMOXICILLIN AND CLAVULANATE POTASSIUM [Concomitant]
     Route: 048
  6. BUDESONIDE AND FORMOTEROL FUMARATE [Concomitant]
  7. SILDENAFIL CITRATE [Concomitant]
     Route: 048
  8. ASPIRIN [Concomitant]
     Route: 048
  9. ACETYLCYSTEINE [Concomitant]
     Route: 048
  10. ACETAMINOPHEN [Concomitant]
     Route: 048
  11. METHYLPREDNISOLONE [Concomitant]
     Route: 048

REACTIONS (2)
  - PULMONARY EMBOLISM [None]
  - THROMBOPHLEBITIS [None]
